FAERS Safety Report 18158478 (Version 4)
Quarter: 2023Q2

REPORT INFORMATION
  Report Type: Spontaneous
  Country: US (occurrence: US)
  Receive Date: 20200817
  Receipt Date: 20230407
  Transmission Date: 20230721
  Serious: Yes (Other)
  Sender: FDA-Public Use
  Company Number: US-GILEAD-2020-0490412

PATIENT
  Sex: Male
  Weight: 104.31 kg

DRUGS (46)
  1. TRUVADA [Suspect]
     Active Substance: EMTRICITABINE\TENOFOVIR DISOPROXIL FUMARATE
     Indication: HIV infection
     Dosage: UNK
     Route: 048
     Dates: start: 2012, end: 2018
  2. TRUVADA [Suspect]
     Active Substance: EMTRICITABINE\TENOFOVIR DISOPROXIL FUMARATE
     Dosage: UNK
     Route: 048
     Dates: start: 2004, end: 2016
  3. TRUVADA [Suspect]
     Active Substance: EMTRICITABINE\TENOFOVIR DISOPROXIL FUMARATE
     Dosage: UNK
     Route: 048
     Dates: end: 2009
  4. ATRIPLA [Suspect]
     Active Substance: EFAVIRENZ\EMTRICITABINE\TENOFOVIR DISOPROXIL FUMARATE
     Indication: HIV infection
     Dosage: UNK
     Route: 048
     Dates: start: 20100616, end: 20161124
  5. ATRIPLA [Suspect]
     Active Substance: EFAVIRENZ\EMTRICITABINE\TENOFOVIR DISOPROXIL FUMARATE
     Dosage: UNK
     Route: 048
     Dates: start: 200902, end: 201611
  6. HYDROCHLOROTHIAZIDE [Concomitant]
     Active Substance: HYDROCHLOROTHIAZIDE
  7. SUSTIVA [Concomitant]
     Active Substance: EFAVIRENZ
  8. TRIUMEQ [Concomitant]
     Active Substance: ABACAVIR SULFATE\DOLUTEGRAVIR SODIUM\LAMIVUDINE
  9. ACETAMINOPHEN [Concomitant]
     Active Substance: ACETAMINOPHEN
  10. AMLODIPINE BESYLATE [Concomitant]
     Active Substance: AMLODIPINE BESYLATE
  11. ARNUITY ELLIPTA [Concomitant]
     Active Substance: FLUTICASONE FUROATE
  12. ATROVENT HFA [Concomitant]
     Active Substance: IPRATROPIUM BROMIDE
  13. CHLORTHALIDONE [Concomitant]
     Active Substance: CHLORTHALIDONE
  14. EPINEPHRINE [Concomitant]
     Active Substance: EPINEPHRINE
  15. ESOMEPRAZOLE [Concomitant]
     Active Substance: ESOMEPRAZOLE
  16. IBUPROFEN [Concomitant]
     Active Substance: IBUPROFEN
  17. LISINOPRIL [Concomitant]
     Active Substance: LISINOPRIL
  18. MAPAP [Concomitant]
     Active Substance: ACETAMINOPHEN
  19. NEXIUM I.V. [Concomitant]
     Active Substance: ESOMEPRAZOLE SODIUM
  20. ACETAMINOPHEN [Concomitant]
     Active Substance: ACETAMINOPHEN
  21. RANITIDINE [Concomitant]
     Active Substance: RANITIDINE
  22. TRAMADOL [Concomitant]
     Active Substance: TRAMADOL
  23. VALSARTAN [Concomitant]
     Active Substance: VALSARTAN
  24. VITAMIN D2 [Concomitant]
     Active Substance: ERGOCALCIFEROL
  25. VITAMIN D3 [Concomitant]
     Active Substance: CHOLECALCIFEROL
  26. AZITHROMYCIN [Concomitant]
     Active Substance: AZITHROMYCIN
  27. CEFAZOLIN [Concomitant]
     Active Substance: CEFAZOLIN
  28. CLINDAMYCIN [Concomitant]
     Active Substance: CLINDAMYCIN
  29. COLACE [Concomitant]
     Active Substance: DOCUSATE SODIUM
  30. DIPHENHYDRAMINE [Concomitant]
     Active Substance: DIPHENHYDRAMINE
  31. ATROPINE\DIPHENOXYLATE [Concomitant]
     Active Substance: ATROPINE\DIPHENOXYLATE
  32. EFAVIRENZ [Concomitant]
     Active Substance: EFAVIRENZ
  33. ERGOCALCIFEROL [Concomitant]
     Active Substance: ERGOCALCIFEROL
  34. FENTANYL [Concomitant]
     Active Substance: FENTANYL
  35. HEPARIN SODIUM [Concomitant]
     Active Substance: HEPARIN SODIUM
  36. ACETAMINOPHEN\HYDROCODONE [Concomitant]
     Active Substance: ACETAMINOPHEN\HYDROCODONE
  37. HYDROXYZINE [Concomitant]
     Active Substance: HYDROXYZINE HYDROCHLORIDE
  38. LORATADINE [Concomitant]
     Active Substance: LORATADINE
  39. MIDAZOLAM [Concomitant]
     Active Substance: MIDAZOLAM
  40. ONDANSETRON [Concomitant]
     Active Substance: ONDANSETRON
  41. OXYCODONE AND ACETAMINOPHEN [Concomitant]
     Active Substance: ACETAMINOPHEN\OXYCODONE HYDROCHLORIDE
  42. PENICILLIN V POTASSIUM [Concomitant]
     Active Substance: PENICILLIN V POTASSIUM
  43. PSEUDOEPHEDRINE [Concomitant]
     Active Substance: PSEUDOEPHEDRINE
  44. SULFAMETHOXAZOLE [Concomitant]
     Active Substance: SULFAMETHOXAZOLE
  45. VANCOMYCIN [Concomitant]
     Active Substance: VANCOMYCIN
  46. VENTOLIN [Concomitant]
     Active Substance: ALBUTEROL SULFATE

REACTIONS (6)
  - Chronic kidney disease [Not Recovered/Not Resolved]
  - Pain [Not Recovered/Not Resolved]
  - Emotional distress [Not Recovered/Not Resolved]
  - Anxiety [Unknown]
  - Anhedonia [Unknown]
  - Proteinuria [Not Recovered/Not Resolved]

NARRATIVE: CASE EVENT DATE: 20160101
